FAERS Safety Report 6539722-5 (Version None)
Quarter: 2010Q1

REPORT INFORMATION
  Report Type: 
  Country: None (occurrence: None)
  Receive Date: 20100111
  Receipt Date: 20091223
  Transmission Date: 20100710
  Serious: Yes (Life-Threatening, Hospitalization)
  Sender: FDA-Public Use
  Company Number: 2007002294

PATIENT
  Age: 75 Year
  Sex: Male
  Weight: 73 kg

DRUGS (5)
  1. ERLOTINIB HYDROCHLORIDE [Suspect]
     Indication: NON-SMALL CELL LUNG CANCER
     Dosage: (100 MG,QD), ORAL
     Route: 048
     Dates: start: 20070727, end: 20071021
  2. SU11248             (SUNITINIB)/            PLACEBO [Suspect]
     Indication: NON-SMALL CELL LUNG CANCER
     Dosage: (25 MG,QD), ORAL
     Route: 048
     Dates: start: 20070725, end: 20071021
  3. MAGIC MOUTHWASH [Concomitant]
  4. MULINDAC (SULINDAC) [Concomitant]
  5. COMBIVENT [Concomitant]

REACTIONS (14)
  - ASTHENIA [None]
  - BLOOD CREATININE INCREASED [None]
  - BRONCHIAL CARCINOMA [None]
  - DECREASED APPETITE [None]
  - DEHYDRATION [None]
  - DIARRHOEA [None]
  - DISEASE PROGRESSION [None]
  - FAILURE TO THRIVE [None]
  - GASTROINTESTINAL HAEMORRHAGE [None]
  - HAEMOGLOBIN DECREASED [None]
  - HYPOTENSION [None]
  - HYPOVOLAEMIA [None]
  - ILEUS [None]
  - OESOPHAGITIS [None]
